FAERS Safety Report 16090917 (Version 1)
Quarter: 2019Q1

REPORT INFORMATION
  Report Type: Spontaneous
  Country: CN (occurrence: CN)
  Receive Date: 20190319
  Receipt Date: 20190319
  Transmission Date: 20190418
  Serious: Yes (Hospitalization)
  Sender: FDA-Public Use
  Company Number: CN-PFIZER INC-2019118227

PATIENT
  Age: 47 Year
  Sex: Female

DRUGS (2)
  1. VFEND [Suspect]
     Active Substance: VORICONAZOLE
     Indication: PNEUMONITIS
     Dosage: 0.2 G, 2X/DAY
     Route: 041
     Dates: start: 20190111, end: 20190212
  2. LI FU XING [Concomitant]
     Indication: PNEUMONITIS
     Dosage: 0.6 G, 1X/DAY
     Route: 041
     Dates: start: 20190107, end: 20190117

REACTIONS (1)
  - Mental disorder [Recovering/Resolving]

NARRATIVE: CASE EVENT DATE: 20190111
